FAERS Safety Report 8923532 (Version 2)
Quarter: 2016Q1

REPORT INFORMATION
  Report Type: Spontaneous
  Country: GB (occurrence: GB)
  Receive Date: 20121123
  Receipt Date: 20160205
  Transmission Date: 20160526
  Serious: Yes (Other)
  Sender: FDA-Public Use
  Company Number: GB-BRISTOL-MYERS SQUIBB COMPANY-17132879

PATIENT
  Age: 26 Year
  Sex: Male
  Weight: 100 kg

DRUGS (1)
  1. ARIPIPRAZOLE. [Suspect]
     Active Substance: ARIPIPRAZOLE
     Indication: PSYCHOTIC DISORDER
     Dosage: ALSO TAKEN 20MG,30MG
     Route: 065
     Dates: start: 200709

REACTIONS (3)
  - Erectile dysfunction [Not Recovered/Not Resolved]
  - Penis disorder [Not Recovered/Not Resolved]
  - Off label use [Unknown]
